FAERS Safety Report 8827148 (Version 2)
Quarter: 2012Q4

REPORT INFORMATION
  Report Type: 
  Country: US (occurrence: US)
  Receive Date: 20121005
  Receipt Date: 20121012
  Transmission Date: 20130627
  Serious: Yes (Hospitalization, Other)
  Sender: FDA-Public Use
  Company Number: US-ROCHE-1132389

PATIENT
  Sex: Female

DRUGS (14)
  1. RITUXAN [Suspect]
     Indication: CHRONIC LYMPHOCYTIC LEUKAEMIA
     Dosage: for 4 weeks
     Route: 050
     Dates: start: 19990524
  2. RITUXAN [Suspect]
     Route: 050
     Dates: start: 199906
  3. RITUXAN [Suspect]
     Route: 050
     Dates: start: 20000426
  4. FLUDARA [Concomitant]
  5. ERYTHROPOIETIN [Concomitant]
  6. FARESTON [Concomitant]
  7. VITAMIN E [Concomitant]
  8. MULTIVITAMIN [Concomitant]
  9. DARVOCET [Concomitant]
     Route: 065
  10. CHLORAMBUCIL [Concomitant]
  11. PAXIL [Concomitant]
  12. CIPRO [Concomitant]
  13. FLAGYL [Concomitant]
  14. BENADRYL [Concomitant]

REACTIONS (14)
  - Pyrexia [Unknown]
  - Lymphadenopathy [Unknown]
  - Pleural effusion [Unknown]
  - Bronchitis chronic [Unknown]
  - Fatigue [Not Recovered/Not Resolved]
  - Disease progression [Unknown]
  - Insomnia [Unknown]
  - Hypogammaglobulinaemia [Unknown]
  - Immunoglobulins decreased [Unknown]
  - Pain [Unknown]
  - Hypoacusis [Unknown]
  - Asthenia [Unknown]
  - Malaise [Unknown]
  - Somnolence [Unknown]
